FAERS Safety Report 5709308-0 (Version None)
Quarter: 2008Q2

REPORT INFORMATION
  Report Type: 
  Country: None (occurrence: None)
  Receive Date: 20080417
  Receipt Date: 20080417
  Transmission Date: 20081010
  Serious: No
  Sender: FDA-Public Use
  Company Number: None

PATIENT
  Age: 50 Year
  Sex: Male
  Weight: 83.4619 kg

DRUGS (1)
  1. RENAGEL [Suspect]
     Indication: RENAL FAILURE CHRONIC
     Dosage: PO TID WITH MEALS
     Route: 048

REACTIONS (3)
  - COUGH [None]
  - STOMACH DISCOMFORT [None]
  - THROAT IRRITATION [None]
